FAERS Safety Report 9168386 (Version 2)
Quarter: 2013Q1

REPORT INFORMATION
  Report Type: Spontaneous
  Country: CA (occurrence: None)
  Receive Date: 20130305
  Receipt Date: 20130320
  Transmission Date: 20140127
  Serious: Yes (Other)
  Sender: FDA-Public Use
  Company Number: 220442

PATIENT
  Age: 31 Year
  Sex: Female
  Weight: 40 kg

DRUGS (25)
  1. INNOHEP [Suspect]
     Indication: JUGULAR VEIN THROMBOSIS
     Route: 058
     Dates: start: 20130127
  2. INNOHEP [Suspect]
     Indication: THROMBOSIS
     Route: 058
     Dates: start: 20130127
  3. ATENOLOL (ATENOLOL) [Concomitant]
  4. AZATHIOPRINE (AZATHIOPRINE) [Concomitant]
  5. AZITHROMYCIN (AZITHROMYCIN) [Concomitant]
  6. CITALOPRAM (CITALOPRAM) [Concomitant]
  7. DEXMEDETOMIDINE (DEXMEDETOMIDINE) [Concomitant]
  8. ESMOLOL (ESMOLOL) [Concomitant]
  9. FENTANYL (FENTANYL) [Concomitant]
  10. GANCICLOVIR (GANCICLOVIR) [Concomitant]
  11. HALOPERIDOL (HALOPERIDOL) [Concomitant]
  12. HUMULIN R (INSULIN HUMAN) [Concomitant]
  13. IPRATROPIUM (IPRATROPIUM) [Concomitant]
  14. LANSOPRAZOLE (LANSOPRAZOLE) [Concomitant]
  15. MAGNESIUM GLUCONATE (MAGNESIUM GLUCONATE) [Concomitant]
  16. METHYLPREDNISOLONE (METHYLPREDNISOLONE) [Suspect]
  17. MIDAZOLAM (MIDAZOLAM) [Concomitant]
  18. PANCRELIPASE (VIOKASE 16) [Concomitant]
  19. PENTAMIDINE (PENTAMIDINE) [Concomitant]
  20. PROPOFOL (PROPOFOL) [Concomitant]
  21. QUETIAPINE (QUETIAPINE) [Concomitant]
  22. SULFAMETHOXAZOLE/TRIMETHOPRIM (BACTRIM) [Concomitant]
  23. VITAMIN D (ERGOCALCIFEROL) [Concomitant]
  24. MULTIVITAMIN (CENTRUM FORTE) (MULTIVITAMIN /00831701/) [Concomitant]
  25. TACROLIMUS (TACROLIMUS) [Concomitant]

REACTIONS (3)
  - Deep vein thrombosis [None]
  - Drug ineffective [None]
  - Laboratory test abnormal [None]
